FAERS Safety Report 4861743-9 (Version None)
Quarter: 2005Q4

REPORT INFORMATION
  Report Type: 
  Country: None (occurrence: None)
  Receive Date: 20051220
  Receipt Date: 20051005
  Transmission Date: 20060501
  Serious: Yes (Hospitalization)
  Sender: FDA-Public Use
  Company Number: US-MERCK-0510USA04371

PATIENT
  Age: 51 Year
  Sex: Female
  Weight: 91 kg

DRUGS (10)
  1. VIOXX [Suspect]
     Indication: BACK PAIN
     Route: 048
     Dates: start: 20000101, end: 20041001
  2. VIOXX [Suspect]
     Route: 048
  3. VIOXX [Suspect]
     Indication: ARTHRALGIA
     Route: 048
     Dates: start: 20000101, end: 20041001
  4. VIOXX [Suspect]
     Route: 048
  5. GLUCOPHAGE [Concomitant]
     Route: 048
  6. ATACAND [Concomitant]
     Route: 048
  7. HYDROCHLOROTHIAZIDE [Concomitant]
     Route: 048
  8. LIPITOR [Concomitant]
     Route: 048
  9. PROZAC [Concomitant]
     Route: 048
  10. NITROPASTE [Suspect]
     Route: 061

REACTIONS (10)
  - CARDIAC DISORDER [None]
  - CARDIOVASCULAR DISORDER [None]
  - CHEST PAIN [None]
  - COSTOCHONDRITIS [None]
  - HEADACHE [None]
  - MICROCYTIC ANAEMIA [None]
  - NAUSEA [None]
  - SPUTUM DISCOLOURED [None]
  - UPPER RESPIRATORY TRACT INFECTION [None]
  - VOMITING [None]
